FAERS Safety Report 4342873-7 (Version None)
Quarter: 2004Q2

REPORT INFORMATION
  Report Type: 
  Country: None (occurrence: None)
  Receive Date: 20040416
  Receipt Date: 20040406
  Transmission Date: 20050107
  Serious: Yes (Death)
  Sender: FDA-Public Use
  Company Number: NSADSS2003002059

PATIENT
  Age: 77 Year
  Sex: Male

DRUGS (8)
  1. DURAGESIC [Suspect]
     Indication: CANCER PAIN
     Dosage: 50 UG/HR, 1 IN 72 HOUR, TRANSDERMAL
     Route: 062
     Dates: start: 20020416, end: 20021102
  2. MORPHINE SULFATE [Concomitant]
  3. ATIVAN [Concomitant]
  4. ZOCOR [Concomitant]
  5. XANAX [Concomitant]
  6. VICODIN [Concomitant]
  7. FLOMAX [Concomitant]
  8. LOMOTIL [Concomitant]

REACTIONS (3)
  - LYMPHOMA [None]
  - MALIGNANT NEOPLASM PROGRESSION [None]
  - RESPIRATORY FAILURE [None]
